FAERS Safety Report 15426214 (Version 1)
Quarter: 2018Q3

REPORT INFORMATION
  Report Type: Spontaneous
  Country: US (occurrence: US)
  Receive Date: 20180925
  Receipt Date: 20180925
  Transmission Date: 20181010
  Serious: Yes (Other)
  Sender: FDA-Public Use
  Company Number: US-ASTRAZENECA-2018SF20327

PATIENT
  Sex: Female

DRUGS (1)
  1. TAGRISSO [Suspect]
     Active Substance: OSIMERTINIB
     Route: 048

REACTIONS (7)
  - Muscle spasms [Unknown]
  - Metastases to spine [Unknown]
  - Dry skin [Unknown]
  - Nail infection [Unknown]
  - Pain [Unknown]
  - Rash pruritic [Unknown]
  - Intervertebral disc protrusion [Unknown]
